FAERS Safety Report 6503967-0 (Version None)
Quarter: 2009Q4

REPORT INFORMATION
  Report Type: 
  Country: None (occurrence: None)
  Receive Date: 20091217
  Receipt Date: 20091215
  Transmission Date: 20100525
  Serious: Yes (Other)
  Sender: FDA-Public Use
  Company Number: JP-BAYER-200913824BYL

PATIENT
  Age: 73 Year
  Sex: Male
  Weight: 56 kg

DRUGS (3)
  1. NEXAVAR [Suspect]
     Indication: HEPATIC NEOPLASM MALIGNANT
     Dosage: TOTAL DAILY DOSE: 800 MG  UNIT DOSE: 200 MG
     Route: 048
     Dates: start: 20090918, end: 20091012
  2. NEXAVAR [Suspect]
     Dosage: UNIT DOSE: 200 MG
     Route: 048
     Dates: start: 20091013, end: 20091026
  3. KERATINAMIN [Concomitant]
     Route: 061
     Dates: start: 20090829, end: 20091026

REACTIONS (7)
  - BLOOD BILIRUBIN INCREASED [None]
  - DECREASED APPETITE [None]
  - DIARRHOEA [None]
  - HEPATIC FUNCTION ABNORMAL [None]
  - METASTASES TO REPRODUCTIVE ORGAN [None]
  - OEDEMA [None]
  - SKIN PAPILLOMA [None]
